FAERS Safety Report 22645868 (Version 1)
Quarter: 2023Q2

REPORT INFORMATION
  Report Type: Other
  Country: None (occurrence: AU)
  Receive Date: 20230627
  Receipt Date: 20230627
  Transmission Date: 20230721
  Serious: Yes (Death)
  Sender: FDA-Public Use
  Company Number: AU-Knight Therapeutics (USA) Inc.-2143159

PATIENT
  Age: 43 Year
  Sex: Female

DRUGS (12)
  1. IMPAVIDO [Suspect]
     Active Substance: MILTEFOSINE
     Indication: Scedosporium infection
     Dates: start: 20200522
  2. VORICONAZOLE [Concomitant]
     Active Substance: VORICONAZOLE
     Dates: start: 202009
  3. VORICONAZOLE [Concomitant]
     Active Substance: VORICONAZOLE
  4. VORICONAZOLE [Concomitant]
     Active Substance: VORICONAZOLE
     Dates: start: 20200522
  5. TERBINAFINE [Concomitant]
     Active Substance: TERBINAFINE
     Dates: start: 20200514
  6. AZACITIDINE [Concomitant]
     Active Substance: AZACITIDINE
     Dates: start: 20200729
  7. AMPHOTERICIN B [Concomitant]
     Active Substance: AMPHOTERICIN B
     Dates: start: 20200513, end: 20200614
  8. MEROPENEM [Concomitant]
     Active Substance: MEROPENEM
     Dates: start: 20200508
  9. PIPERACILIN-TAZOBACTAM [Concomitant]
     Dates: start: 20200425, end: 20200508
  10. POSACONAZOLE [Concomitant]
     Active Substance: POSACONAZOLE
     Dates: start: 20200425
  11. CYTARABINE [Concomitant]
     Active Substance: CYTARABINE
     Dates: start: 20200425
  12. DAUNORUBICIN [Concomitant]
     Active Substance: DAUNORUBICIN
     Dates: start: 20200425

REACTIONS (2)
  - Drug ineffective for unapproved indication [Fatal]
  - Off label use [Unknown]

NARRATIVE: CASE EVENT DATE: 20200522
